FAERS Safety Report 8312015-1 (Version None)
Quarter: 2012Q1

REPORT INFORMATION
  Report Type: 
  Country: None (occurrence: None)
  Receive Date: 20120315
  Receipt Date: 20110513
  Transmission Date: 20120608
  Serious: Yes (Other)
  Sender: FDA-Public Use
  Company Number: PHHY2011US21220

PATIENT
  Age: 31 Year
  Sex: Male

DRUGS (5)
  1. BACLOFEN [Concomitant]
  2. PAXIL [Concomitant]
  3. GILENYA [Suspect]
     Indication: MULTIPLE SCLEROSIS
     Dosage: 0.5 MG, DAILY, ORAL
     Route: 048
     Dates: start: 20110309, end: 20110315
  4. AMPYRA [Concomitant]
  5. ADVIL (MEFENAMIC ACID) [Concomitant]

REACTIONS (5)
  - VOMITING [None]
  - DYSPNOEA [None]
  - COUGH [None]
  - BRONCHITIS [None]
  - CHEST PAIN [None]
